FAERS Safety Report 4389531-0 (Version None)
Quarter: 2004Q3

REPORT INFORMATION
  Report Type: 
  Country: None (occurrence: None)
  Receive Date: 20040702
  Receipt Date: 20040618
  Transmission Date: 20050211
  Serious: Yes (Hospitalization)
  Sender: FDA-Public Use
  Company Number: BE-AMGEN-US081754

PATIENT
  Sex: Female

DRUGS (8)
  1. ENBREL [Suspect]
     Indication: RHEUMATOID ARTHRITIS
     Route: 058
     Dates: start: 19980101
  2. PIROXICAM [Concomitant]
  3. ISRADIPINE [Concomitant]
  4. FOSAMAX [Concomitant]
  5. CALCIUM [Concomitant]
  6. DURAGESIC [Concomitant]
  7. TAMOXIFEN [Concomitant]
     Dates: start: 20030101
  8. MEDROL [Concomitant]

REACTIONS (3)
  - FISTULA [None]
  - OSTEITIS [None]
  - WOUND [None]
